FAERS Safety Report 18717277 (Version 1)
Quarter: 2021Q1

REPORT INFORMATION
  Report Type: Spontaneous
  Country: CN (occurrence: CN)
  Receive Date: 20210108
  Receipt Date: 20210108
  Transmission Date: 20210419
  Serious: Yes (Hospitalization)
  Sender: FDA-Public Use
  Company Number: CN-PFIZER INC-2021008399

PATIENT
  Age: 61 Year
  Sex: Male
  Weight: 65 kg

DRUGS (8)
  1. METHOTREXATE SODIUM. [Suspect]
     Active Substance: METHOTREXATE SODIUM
     Dosage: 5500 MG, 1X/DAY
     Dates: start: 20201130, end: 20201130
  2. CALCIUM FOLINATE [Suspect]
     Active Substance: LEUCOVORIN CALCIUM
     Indication: LYMPHOMA
     Dosage: 0.2 G, 1X/DAY
     Dates: start: 20201130, end: 20201202
  3. CALCIUM FOLINATE [Suspect]
     Active Substance: LEUCOVORIN CALCIUM
     Dosage: 0.2 G, 1X/DAY
     Dates: start: 20201207, end: 20201217
  4. METHOTREXATE SODIUM. [Suspect]
     Active Substance: METHOTREXATE SODIUM
     Indication: LYMPHOMA
     Dosage: 500 MG, 1X/DAY
     Dates: start: 20201130, end: 20201130
  5. ETOPOSIDE. [Suspect]
     Active Substance: ETOPOSIDE
     Indication: LYMPHOMA
     Dosage: 0.1 G, 1X/DAY
     Route: 041
     Dates: start: 20201201, end: 20201204
  6. CALCIUM FOLINATE [Suspect]
     Active Substance: LEUCOVORIN CALCIUM
     Dosage: 0.3 G, 1X/DAY
     Route: 040
     Dates: start: 20201208, end: 20201209
  7. CALCIUM FOLINATE [Suspect]
     Active Substance: LEUCOVORIN CALCIUM
     Dosage: 0.1 G, 1X/DAY
     Route: 040
     Dates: start: 20201201, end: 20201201
  8. CALCIUM FOLINATE [Suspect]
     Active Substance: LEUCOVORIN CALCIUM
     Dosage: 0.03 G, 4X/DAY
     Route: 040
     Dates: start: 20201201, end: 20201203

REACTIONS (19)
  - Abdominal distension [Recovered/Resolved]
  - Asthenia [Recovered/Resolved]
  - Nausea [Recovered/Resolved]
  - Abdominal pain [Recovered/Resolved]
  - Decreased appetite [Recovered/Resolved]
  - Chest discomfort [Recovered/Resolved]
  - Abnormal faeces [Recovered/Resolved]
  - Mouth ulceration [Recovered/Resolved]
  - Oropharyngeal pain [Recovered/Resolved]
  - Gingival swelling [Recovered/Resolved]
  - Glomerular filtration rate decreased [Recovered/Resolved]
  - Gingival pain [Recovered/Resolved]
  - Blood creatinine increased [Recovered/Resolved]
  - Dry mouth [Recovered/Resolved]
  - Odynophagia [Recovered/Resolved]
  - Vomiting [Recovered/Resolved]
  - Electrolyte imbalance [Recovered/Resolved]
  - Pain [Recovered/Resolved]
  - Oral pain [Recovered/Resolved]

NARRATIVE: CASE EVENT DATE: 20201203
